FAERS Safety Report 25605866 (Version 1)
Quarter: 2025Q3

REPORT INFORMATION
  Report Type: Spontaneous
  Country: US (occurrence: US)
  Receive Date: 20250725
  Receipt Date: 20250725
  Transmission Date: 20251021
  Serious: No
  Sender: COSETTE PHARMACEUTICALS INC
  Company Number: US-COSETTE-CP2025US000693

PATIENT
  Age: 35 Year
  Sex: Female

DRUGS (2)
  1. VYLEESI [Suspect]
     Active Substance: BREMELANOTIDE ACETATE
     Indication: Product used for unknown indication
     Route: 058
     Dates: start: 20250711, end: 20250711
  2. PHENTERMINE [Concomitant]
     Active Substance: PHENTERMINE
     Indication: Product used for unknown indication
     Route: 065

REACTIONS (1)
  - Nausea [Recovered/Resolved]

NARRATIVE: CASE EVENT DATE: 20250701
